FAERS Safety Report 21951950 (Version 1)
Quarter: 2023Q1

REPORT INFORMATION
  Report Type: Report from Study
  Country: US (occurrence: US)
  Receive Date: 20230203
  Receipt Date: 20230203
  Transmission Date: 20230417
  Serious: No
  Sender: FDA-Public Use
  Company Number: US-EXELIXIS-CABO-21047690

PATIENT
  Age: 72 Year
  Sex: Female

DRUGS (11)
  1. CABOMETYX [Suspect]
     Active Substance: CABOZANTINIB S-MALATE
     Indication: Renal cell carcinoma
     Dosage: 40 MG, QD
     Dates: start: 20211201, end: 20220202
  2. CABOMETYX [Suspect]
     Active Substance: CABOZANTINIB S-MALATE
     Dosage: 40 MG, QD
     Dates: start: 20220207
  3. CABOMETYX [Suspect]
     Active Substance: CABOZANTINIB S-MALATE
     Dosage: 80 MG, (2 TABLETS INSTEAD OF THE PRESCRIBED ONE TABLET OF CABOMETYX 40 MG)
  4. OPDIVO [Suspect]
     Active Substance: NIVOLUMAB
     Indication: Renal cell carcinoma
     Dosage: UNK UNK, Q2WEEKS
     Route: 042
  5. OPDIVO [Suspect]
     Active Substance: NIVOLUMAB
     Dosage: 40 MG, MONTHLY
     Route: 042
  6. LEVOTHYROXINE [Concomitant]
     Active Substance: LEVOTHYROXINE
     Dosage: UNK
  7. ATORVASTATIN [Concomitant]
     Active Substance: ATORVASTATIN
     Dosage: UNK
  8. VITAMIN D3 [Concomitant]
     Active Substance: CHOLECALCIFEROL
     Dosage: UNK
  9. DULCOLAX NOS [Concomitant]
     Active Substance: BISACODYL OR DOCUSATE SODIUM
     Dosage: UNK
  10. Nature^s bounty adult multivitamin [Concomitant]
     Dosage: UNK
  11. MATURE MULTIVITAMINS [Concomitant]
     Dosage: UNK

REACTIONS (8)
  - Gingival swelling [Recovered/Resolved]
  - Hepatic enzyme increased [Not Recovered/Not Resolved]
  - Stomatitis [Unknown]
  - Vision blurred [Recovered/Resolved]
  - Constipation [Recovered/Resolved]
  - Dizziness [Recovered/Resolved]
  - Blood magnesium decreased [Recovered/Resolved]
  - Accidental overdose [Unknown]

NARRATIVE: CASE EVENT DATE: 20211201
